FAERS Safety Report 24576036 (Version 1)
Quarter: 2024Q4

REPORT INFORMATION
  Report Type: Spontaneous
  Country: US (occurrence: None)
  Receive Date: 20241102
  Receipt Date: 20241102
  Transmission Date: 20250115
  Serious: Yes (Other)
  Sender: Public
  Company Number: None

PATIENT
  Age: 41 Year
  Sex: Female
  Weight: 67.5 kg

DRUGS (6)
  1. VALTREX [Suspect]
     Active Substance: VALACYCLOVIR HYDROCHLORIDE
     Indication: Herpes simplex
     Dosage: OTHER QUANTITY : 3 TABLET(S);?FREQUENCY : 3 TIMES A DAY;?
     Route: 048
     Dates: start: 20241010, end: 20241101
  2. LYSINE [Concomitant]
     Active Substance: LYSINE
  3. VITAMIN D [Concomitant]
     Active Substance: VITAMIN D NOS
  4. VITAMIN C [Concomitant]
     Active Substance: ASCORBIC ACID
  5. Women^s Once A Day [Concomitant]
  6. IRON [Concomitant]
     Active Substance: IRON

REACTIONS (3)
  - Drug ineffective [None]
  - Pain [None]
  - Herpes ophthalmic [None]

NARRATIVE: CASE EVENT DATE: 20241010
